FAERS Safety Report 24104324 (Version 1)
Quarter: 2024Q3

REPORT INFORMATION
  Report Type: Report from Study
  Country: IN (occurrence: IN)
  Receive Date: 20240717
  Receipt Date: 20240717
  Transmission Date: 20241017
  Serious: Yes (Death)
  Sender: ROCHE
  Company Number: IN-ROCHE-10000010635

PATIENT
  Age: 77 Year
  Sex: Male

DRUGS (1)
  1. TECENTRIQ [Suspect]
     Active Substance: ATEZOLIZUMAB
     Indication: Hepatocellular carcinoma
     Route: 042
     Dates: start: 20231031

REACTIONS (3)
  - Infection [Unknown]
  - Heart rate decreased [Unknown]
  - Death [Fatal]

NARRATIVE: CASE EVENT DATE: 20240701
